FAERS Safety Report 20004757 (Version 1)
Quarter: 2021Q4

REPORT INFORMATION
  Report Type: Spontaneous
  Country: US (occurrence: US)
  Receive Date: 20211027
  Receipt Date: 20211027
  Transmission Date: 20220303
  Serious: No
  Sender: FDA-Public Use
  Company Number: None

PATIENT
  Age: 32 Year
  Sex: Female
  Weight: 54 kg

DRUGS (24)
  1. DEXTROAMPHET SACCHARAT, AMPHET ASPARTATE, DEXTROAMPHET SULFATE AND AMP [Suspect]
     Active Substance: AMPHETAMINE ASPARTATE\AMPHETAMINE SULFATE\DEXTROAMPHETAMINE SACCHARATE\DEXTROAMPHETAMINE SULFATE
     Indication: Attention deficit hyperactivity disorder
     Dosage: ?          QUANTITY:1 TABLET(S);
     Route: 048
     Dates: start: 20210923, end: 20211018
  2. ROBAXIN [Concomitant]
     Active Substance: METHOCARBAMOL
  3. AIMOVIG [Concomitant]
     Active Substance: ERENUMAB-AOOE
  4. VENTOLIN HFA [Concomitant]
     Active Substance: ALBUTEROL SULFATE
  5. UBRELVY (IBROGEPANT) [Concomitant]
  6. DEXTROAMPHET SACCHARAT, AMPHET ASPARTATE, DEXTROAMPHET SULFATE AND AMP [Concomitant]
     Active Substance: AMPHETAMINE ASPARTATE\AMPHETAMINE SULFATE\DEXTROAMPHETAMINE SACCHARATE\DEXTROAMPHETAMINE SULFATE
  7. GABAPENTIN [Concomitant]
     Active Substance: GABAPENTIN
  8. DICYCLOMINE [Concomitant]
     Active Substance: DICYCLOMINE HYDROCHLORIDE
  9. FLUTICASONE PROPIONATE [Concomitant]
     Active Substance: FLUTICASONE PROPIONATE
  10. PARAGARD T 380A [Concomitant]
     Active Substance: COPPER
  11. COPPER [Concomitant]
     Active Substance: COPPER
  12. VITAMINS [Concomitant]
     Active Substance: VITAMINS
  13. DAILY PROBIOTIC [Concomitant]
  14. GARDEN OF LIFE SHELF WOMEN^S DAILY ONCE [Concomitant]
  15. NEUROMAG [Concomitant]
  16. MAGNESIUM [Concomitant]
     Active Substance: MAGNESIUM
  17. OVEGA [Concomitant]
  18. CAL-MAG PLUS [Concomitant]
  19. CETIRIZINE HYDROCHLORIDE [Concomitant]
     Active Substance: CETIRIZINE HYDROCHLORIDE
  20. BLOOD BUILDER [Concomitant]
  21. COLLAGEN BUILDER [Concomitant]
  22. SAMBUCUS ELDERBERRY GUMMIES [Concomitant]
  23. ADVANCED ENZYME SYSTEM [Concomitant]
  24. CANNABIDIOL\HERBALS [Concomitant]
     Active Substance: CANNABIDIOL\HERBALS

REACTIONS (8)
  - Anxiety [None]
  - Mental impairment [None]
  - Panic attack [None]
  - Thinking abnormal [None]
  - Feeling of despair [None]
  - Negative thoughts [None]
  - Loss of personal independence in daily activities [None]
  - Anxiety [None]

NARRATIVE: CASE EVENT DATE: 20210924
